FAERS Safety Report 6179936-X (Version None)
Quarter: 2009Q2

REPORT INFORMATION
  Report Type: 
  Country: None (occurrence: None)
  Receive Date: 20090505
  Receipt Date: 20090428
  Transmission Date: 20091009
  Serious: Yes (Hospitalization)
  Sender: FDA-Public Use
  Company Number: PHHY2009FR16596

PATIENT
  Sex: Female

DRUGS (6)
  1. MYFORTIC [Suspect]
     Indication: PROPHYLAXIS AGAINST TRANSPLANT REJECTION
     Dosage: UNK
     Route: 048
     Dates: start: 20070401
  2. PROGRAF [Suspect]
     Indication: PROPHYLAXIS AGAINST TRANSPLANT REJECTION
     Dosage: UNK
     Route: 048
     Dates: start: 20070401
  3. ZYVOXID [Concomitant]
     Dosage: UNK
     Route: 048
     Dates: start: 20090330, end: 20090408
  4. TAZOCILLINE [Concomitant]
     Dosage: UNK
     Route: 042
     Dates: start: 20090329, end: 20090408
  5. SOLUPRED [Concomitant]
  6. VALACYCLOVIR HCL [Concomitant]

REACTIONS (3)
  - ANAEMIA [None]
  - CHOLECYSTECTOMY [None]
  - CHOLECYSTITIS [None]
